FAERS Safety Report 13329790 (Version 1)
Quarter: 2017Q1

REPORT INFORMATION
  Report Type: Spontaneous
  Country: FR (occurrence: FR)
  Receive Date: 20170313
  Receipt Date: 20170313
  Transmission Date: 20170428
  Serious: Yes (Other)
  Sender: FDA-Public Use
  Company Number: FR-PFIZER INC-2017101437

PATIENT
  Age: 41 Year
  Sex: Female

DRUGS (7)
  1. CEFAZOLIN [Suspect]
     Active Substance: CEFAZOLIN
     Indication: ABSCESS
     Dosage: 3 G, DAILY, (ELEVEN DAYS AFTER THE OUTSET OF THE TREATMENT - THE PATIENT HAD RECEIVED 33G CEFAZOLIN)
     Route: 042
  2. CEFAZOLIN [Suspect]
     Active Substance: CEFAZOLIN
     Indication: STAPHYLOCOCCAL ABSCESS
     Dosage: CEFAZOLIN WAS REINTRODUCED AT A DOSE OF 500 MG AFTER EACH DIALYSIS
     Route: 042
  3. PHENOBARBITAL. [Concomitant]
     Active Substance: PHENOBARBITAL
     Dosage: 15 CG/ DAY
  4. PHENOBARBITAL. [Concomitant]
     Active Substance: PHENOBARBITAL
     Indication: CLONIC CONVULSION
     Dosage: 5 CG PHENOBARIBITAL PER DAY
  5. DIAZEPAM. [Concomitant]
     Active Substance: DIAZEPAM
     Indication: SEIZURE
     Dosage: UNK (RESISTED 3 INJECTIONS)
  6. TOBRAMYCIN. [Concomitant]
     Active Substance: TOBRAMYCIN
     Indication: STAPHYLOCOCCAL ABSCESS
  7. TOBRAMYCIN. [Concomitant]
     Active Substance: TOBRAMYCIN
     Indication: ABSCESS
     Dosage: 50 MG, (TOBRAMYCIN IN A 1-HOUR PERFUSION AFTER EACH DIALYSIS (3 TIMES PER WEEK)

REACTIONS (3)
  - Clonic convulsion [Unknown]
  - Encephalopathy [Unknown]
  - Toxicity to various agents [Unknown]
